FAERS Safety Report 6166538-4 (Version None)
Quarter: 2009Q2

REPORT INFORMATION
  Report Type: 
  Country: None (occurrence: None)
  Receive Date: 20090424
  Receipt Date: 20090416
  Transmission Date: 20091009
  Serious: Yes (Other)
  Sender: FDA-Public Use
  Company Number: DE-ROCHE-628347

PATIENT
  Age: 76 Year
  Sex: Female

DRUGS (1)
  1. BONIVA [Suspect]
     Indication: OSTEOPOROSIS
     Dosage: FIRST TABLET ON 1 FEB 2009, 2ND TABLET ON 1 MAR 2009
     Route: 048
     Dates: start: 20090201, end: 20090301

REACTIONS (6)
  - DYSPHAGIA [None]
  - OROPHARYNGEAL SWELLING [None]
  - PAIN [None]
  - PAIN IN JAW [None]
  - PALATAL DISORDER [None]
  - PERIODONTITIS [None]
